FAERS Safety Report 19719552 (Version 1)
Quarter: 2021Q3

REPORT INFORMATION
  Report Type: Spontaneous
  Country: CH (occurrence: CH)
  Receive Date: 20210818
  Receipt Date: 20210818
  Transmission Date: 20211014
  Serious: Yes (Life-Threatening, Disabling)
  Sender: FDA-Public Use
  Company Number: CH-ASTRAZENECA-2021A675714

PATIENT
  Age: 73 Year
  Sex: Female
  Weight: 67 kg

DRUGS (17)
  1. VITAMIN D3 WILD [Concomitant]
     Active Substance: CHOLECALCIFEROL
     Route: 048
  2. VALACYCLOVIR [Concomitant]
     Active Substance: VALACYCLOVIR HYDROCHLORIDE
     Route: 048
  3. PANTOZOL [Concomitant]
     Active Substance: PANTOPRAZOLE SODIUM
     Route: 048
  4. XARELTO [Concomitant]
     Active Substance: RIVAROXABAN
     Route: 048
  5. DEROXAT [Concomitant]
     Active Substance: PAROXETINE HYDROCHLORIDE
     Route: 048
  6. MAGNESIUM DIASPORAL [Concomitant]
     Active Substance: MAGNESIUM
     Dosage: AS NECESSARY
     Route: 048
  7. VOLTAREN FORTE [Concomitant]
     Dosage: AS NECESSARY
     Route: 048
  8. FAKTU [Concomitant]
     Dosage: AS NECESSARY
     Route: 054
  9. LYNPARZA [Suspect]
     Active Substance: OLAPARIB
     Indication: OVARIAN CANCER
     Dosage: 300.0MG UNKNOWN
     Route: 048
     Dates: start: 20200201, end: 20200831
  10. TEMESTA EXPIDET [Concomitant]
     Active Substance: LORAZEPAM
     Route: 048
  11. LYNPARZA [Suspect]
     Active Substance: OLAPARIB
     Indication: OVARIAN CANCER
     Dosage: 400.0MG UNKNOWN
     Route: 048
     Dates: start: 20190212, end: 20200209
  12. ZINC. [Concomitant]
     Active Substance: ZINC
     Route: 048
  13. VITAMIN C [Concomitant]
     Active Substance: ASCORBIC ACID
     Route: 048
  14. FLUIDOSE [Concomitant]
     Dosage: AS NECESSARY
     Route: 047
  15. MINALGIN [Concomitant]
     Active Substance: METAMIZOLE
     Dosage: AS NECESSARY
     Route: 048
  16. ALUCOL [Concomitant]
     Active Substance: ALUMINUM HYDROXIDE\MAGNESIUM HYDROXIDE
     Dosage: AS NECESSARY
     Route: 048
  17. LOPERAMID [Concomitant]
     Active Substance: LOPERAMIDE
     Dosage: AS NECESSARY
     Route: 048

REACTIONS (4)
  - Neutropenia [Unknown]
  - Bicytopenia [Unknown]
  - Myelodysplastic syndrome [Not Recovered/Not Resolved]
  - Anaemia [Unknown]

NARRATIVE: CASE EVENT DATE: 20200831
